FAERS Safety Report 5092365-5 (Version None)
Quarter: 2006Q3

REPORT INFORMATION
  Report Type: 
  Country: None (occurrence: None)
  Receive Date: 20060825
  Receipt Date: 20060807
  Transmission Date: 20061208
  Serious: Yes (Hospitalization)
  Sender: FDA-Public Use
  Company Number: US200608002140

PATIENT
  Sex: Female
  Weight: 95.7 kg

DRUGS (1)
  1. ZYPREXA [Suspect]
     Indication: PANIC ATTACK
     Dates: start: 20030601

REACTIONS (2)
  - BIOPSY LIVER [None]
  - DIABETES MELLITUS [None]
